FAERS Safety Report 24545617 (Version 6)
Quarter: 2025Q1

REPORT INFORMATION
  Report Type: Spontaneous
  Country: US (occurrence: US)
  Receive Date: 20241024
  Receipt Date: 20250221
  Transmission Date: 20250409
  Serious: Yes (Other)
  Sender: PFIZER
  Company Number: US-PFIZER INC-202400278654

PATIENT
  Age: 66 Year
  Sex: Female

DRUGS (4)
  1. TUKYSA [Suspect]
     Active Substance: TUCATINIB
     Dosage: TAKE 2 TABLETS OF 150 MG, 2 TIMES DAILY
     Route: 048
     Dates: start: 20241002
  2. CAPECITABINE [Suspect]
     Active Substance: CAPECITABINE
  3. CAPECITABINE [Suspect]
     Active Substance: CAPECITABINE
     Dates: start: 20250107
  4. HERCEPTIN [Concomitant]
     Active Substance: TRASTUZUMAB

REACTIONS (12)
  - Seizure [Unknown]
  - Paralysis [Unknown]
  - Neoplasm progression [Not Recovered/Not Resolved]
  - Dizziness [Unknown]
  - Musculoskeletal pain [Unknown]
  - Illness [Unknown]
  - Cough [Unknown]
  - Retching [Unknown]
  - Fall [Unknown]
  - Head injury [Unknown]
  - Gastrooesophageal reflux disease [Not Recovered/Not Resolved]
  - Off label use [Unknown]

NARRATIVE: CASE EVENT DATE: 20241002
